FAERS Safety Report 10303867 (Version 3)
Quarter: 2015Q3

REPORT INFORMATION
  Report Type: Spontaneous
  Country: US (occurrence: US)
  Receive Date: 20140714
  Receipt Date: 20150817
  Transmission Date: 20151125
  Serious: Yes (Hospitalization)
  Sender: FDA-Public Use
  Company Number: US-GILEAD-2013-0083612

PATIENT
  Age: 59 Year
  Sex: Male

DRUGS (5)
  1. REVATIO [Concomitant]
     Active Substance: SILDENAFIL CITRATE
  2. LETAIRIS [Suspect]
     Active Substance: AMBRISENTAN
     Indication: PULMONARY HYPERTENSION
     Dosage: 10 MG, QD
     Route: 048
     Dates: start: 20130627
  3. TRACLEER [Concomitant]
     Active Substance: BOSENTAN
  4. LETAIRIS [Suspect]
     Active Substance: AMBRISENTAN
     Indication: CHRONIC HEPATIC FAILURE
  5. LETAIRIS [Suspect]
     Active Substance: AMBRISENTAN
     Indication: PORTOPULMONARY HYPERTENSION

REACTIONS (1)
  - Fluid retention [Unknown]
